FAERS Safety Report 9347985 (Version 2)
Quarter: 2013Q4

REPORT INFORMATION
  Report Type: Spontaneous
  Country: US (occurrence: US)
  Receive Date: 20130614
  Receipt Date: 20131106
  Transmission Date: 20140711
  Serious: Yes (Hospitalization)
  Sender: FDA-Public Use
  Company Number: US-BAYER-2013-070601

PATIENT
  Age: 32 Year
  Sex: Female
  Weight: 90.7 kg

DRUGS (1)
  1. MIRENA [Suspect]
     Indication: CONTRACEPTION
     Dosage: 20 MCG/24HR, CONT
     Route: 015
     Dates: start: 20060405, end: 20100526

REACTIONS (11)
  - Uterine perforation [None]
  - Abdominal discomfort [None]
  - Injury [None]
  - Abdominal pain [None]
  - Emotional distress [None]
  - Pregnancy with contraceptive device [None]
  - Drug ineffective [None]
  - Anxiety [None]
  - Psychological trauma [None]
  - Dyspareunia [None]
  - Device failure [None]
